FAERS Safety Report 22293765 (Version 1)
Quarter: 2023Q2

REPORT INFORMATION
  Report Type: Spontaneous
  Country: HU (occurrence: HU)
  Receive Date: 20230508
  Receipt Date: 20230508
  Transmission Date: 20230722
  Serious: Yes (Hospitalization)
  Sender: FDA-Public Use
  Company Number: None

PATIENT
  Age: 51 Year
  Sex: Male
  Weight: 93 kg

DRUGS (5)
  1. OXALIPLATIN [Suspect]
     Active Substance: OXALIPLATIN
     Indication: Rectal adenocarcinoma
     Dosage: STRENGTH: 5 MG, IN 250 ML DEXTROSE SOLUTION (5%) FOR 2 HOURS
     Dates: start: 20230201, end: 20230201
  2. FLUOROURACIL [Suspect]
     Active Substance: FLUOROURACIL
     Indication: Rectal adenocarcinoma
     Dosage: 800 MG IN INTRAVENOUS BOLUS, 4800 MG INTRAVENOUSLY WITH AN INFUSION PUMP
     Dates: start: 20230201, end: 20230201
  3. VECTIBIX [Concomitant]
     Active Substance: PANITUMUMAB
     Indication: Rectal adenocarcinoma
     Dates: start: 20230201, end: 20230201
  4. LEUCOVORIN CALCIUM [Concomitant]
     Active Substance: LEUCOVORIN CALCIUM
     Dosage: IN 250 ML DEXTROSE SOLUTION (5%) FOR 2 HOURS
     Dates: start: 20230201, end: 20230201
  5. TAMSULOSIN [Concomitant]
     Active Substance: TAMSULOSIN
     Dates: end: 20230214

REACTIONS (1)
  - Acute myocardial infarction [Recovered/Resolved with Sequelae]

NARRATIVE: CASE EVENT DATE: 20230215
